FAERS Safety Report 9083226 (Version 1)
Quarter: 2013Q1

REPORT INFORMATION
  Report Type: Spontaneous
  Country: ES (occurrence: DE)
  Receive Date: 20130131
  Receipt Date: 20130131
  Transmission Date: 20140127
  Serious: Yes (Hospitalization)
  Sender: FDA-Public Use
  Company Number: DE-FRI-1000042293

PATIENT
  Age: 57 Year
  Sex: Female
  Weight: 81 kg

DRUGS (5)
  1. ACLIDINIUM BROMIDE [Suspect]
     Indication: CHRONIC OBSTRUCTIVE PULMONARY DISEASE
     Dosage: 644 MCG
     Dates: start: 20121221, end: 20121223
  2. SYMBICORT [Concomitant]
  3. DAXAS [Concomitant]
  4. VOTUM [Concomitant]
  5. AMLODIPIN [Concomitant]

REACTIONS (1)
  - Chronic obstructive pulmonary disease [Recovered/Resolved]
